FAERS Safety Report 9053331 (Version 2)
Quarter: 2013Q1

REPORT INFORMATION
  Report Type: Spontaneous
  Country: IT (occurrence: IT)
  Receive Date: 20130207
  Receipt Date: 20130220
  Transmission Date: 20140127
  Serious: Yes (Hospitalization, Other)
  Sender: FDA-Public Use
  Company Number: IT-BRISTOL-MYERS SQUIBB COMPANY-17347022

PATIENT
  Age: 35 Year
  Sex: Male

DRUGS (3)
  1. ABILIFY TABS 10 MG [Suspect]
     Indication: BIPOLAR DISORDER
     Route: 048
     Dates: start: 201208, end: 201301
  2. CARBOLITHIUM [Concomitant]
     Dosage: PLURIANNUAL
  3. TAVOR [Concomitant]
     Dosage: 1 DF = 1 TAB

REACTIONS (2)
  - Deep vein thrombosis [Unknown]
  - Pulmonary embolism [Unknown]
